FAERS Safety Report 7350588-6 (Version None)
Quarter: 2011Q1

REPORT INFORMATION
  Report Type: 
  Country: None (occurrence: None)
  Receive Date: 20110314
  Receipt Date: 20110301
  Transmission Date: 20110831
  Serious: Yes (Hospitalization, Disabling, Other)
  Sender: FDA-Public Use
  Company Number: US-MERCK-1008USA00399

PATIENT
  Age: 40 Year
  Sex: Female

DRUGS (5)
  1. ACTONEL [Suspect]
     Indication: PROPHYLAXIS
     Route: 048
     Dates: start: 20040101, end: 20070820
  2. TYLENOL [Concomitant]
     Route: 065
  3. FOSAMAX [Suspect]
     Route: 048
     Dates: start: 20010101, end: 20040101
  4. FOSAMAX [Suspect]
     Indication: PROPHYLAXIS
     Route: 048
  5. VITAMINS (UNSPECIFIED) [Concomitant]
     Route: 065

REACTIONS (49)
  - GLOMERULONEPHRITIS MEMBRANOUS [None]
  - PROTEINURIA [None]
  - OEDEMA PERIPHERAL [None]
  - DRUG INEFFECTIVE [None]
  - OSTEONECROSIS OF JAW [None]
  - OSTEOMYELITIS [None]
  - HYPERTENSION [None]
  - RAYNAUD'S PHENOMENON [None]
  - OVARIAN DISORDER [None]
  - OSTEOPOROSIS [None]
  - ADVERSE DRUG REACTION [None]
  - DYSGEUSIA [None]
  - GASTROENTERITIS [None]
  - LOOSE TOOTH [None]
  - SPEECH DISORDER [None]
  - ABDOMINAL DISCOMFORT [None]
  - RHEUMATOID ARTHRITIS [None]
  - TOOTH DISORDER [None]
  - PERICARDITIS [None]
  - PAIN IN EXTREMITY [None]
  - FATIGUE [None]
  - CANDIDIASIS [None]
  - ADVERSE EVENT [None]
  - SINUSITIS FUNGAL [None]
  - ASTHMA [None]
  - MYALGIA [None]
  - STRESS [None]
  - NIGHT SWEATS [None]
  - CARDIAC DISORDER [None]
  - SYSTEMIC LUPUS ERYTHEMATOSUS [None]
  - DIARRHOEA [None]
  - HYPERGLYCAEMIA [None]
  - ARTHRALGIA [None]
  - DRUG EXPOSURE DURING PREGNANCY [None]
  - INFECTION [None]
  - RENAL DISORDER [None]
  - TYPE 2 DIABETES MELLITUS [None]
  - NAUSEA [None]
  - BRONCHIAL HYPERREACTIVITY [None]
  - TOOTH ABSCESS [None]
  - LUPUS NEPHRITIS [None]
  - PLEURISY [None]
  - NEPHROTIC SYNDROME [None]
  - INCREASED APPETITE [None]
  - SOMNOLENCE [None]
  - RESTLESS LEGS SYNDROME [None]
  - TOOTHACHE [None]
  - PERIODONTITIS [None]
  - DENTAL CARIES [None]
